FAERS Safety Report 21307494 (Version 1)
Quarter: 2022Q3

REPORT INFORMATION
  Report Type: Other
  Country: None (occurrence: TN)
  Receive Date: 20220908
  Receipt Date: 20220908
  Transmission Date: 20221027
  Serious: No
  Sender: FDA-Public Use
  Company Number: TN-Stason Pharmaceuticals, Inc.-2132653

PATIENT
  Age: 53 Year
  Sex: Female

DRUGS (1)
  1. CAPTOPRIL [Suspect]
     Active Substance: CAPTOPRIL
     Indication: Hypertension
     Route: 065

REACTIONS (1)
  - Drug eruption [Recovered/Resolved]
